FAERS Safety Report 7430024-1 (Version None)
Quarter: 2011Q2

REPORT INFORMATION
  Report Type: 
  Country: None (occurrence: None)
  Receive Date: 20110421
  Receipt Date: 20110412
  Transmission Date: 20111010
  Serious: Yes (Disabling)
  Sender: FDA-Public Use
  Company Number: US-ASTRAZENECA-2011SE21363

PATIENT
  Age: 83 Year
  Sex: Female
  Weight: 67 kg

DRUGS (16)
  1. BUPIVACAINE HCL [Concomitant]
     Route: 051
     Dates: start: 20040909
  2. LOVASTATIN [Concomitant]
  3. SODIUM CHLORIDE [Concomitant]
     Dosage: MIXED WITH LIDOCAINE AND KENALOG
     Route: 051
     Dates: start: 20040706
  4. LIDOCAINE [Suspect]
     Route: 051
     Dates: start: 20040630
  5. ASPIRIN [Concomitant]
  6. RAMIPRIL [Concomitant]
  7. KENALOG-40 [Concomitant]
     Indication: BACK PAIN
     Dosage: 6 CC OF
     Route: 051
     Dates: start: 20040630, end: 20041201
  8. LIDOCAINE [Suspect]
     Route: 051
     Dates: start: 20040805
  9. AMIODARONE [Concomitant]
  10. KENALOG-40 [Concomitant]
     Indication: SPINAL COLUMN INJURY
     Dosage: 6 CC OF
     Route: 051
     Dates: start: 20040630, end: 20041201
  11. LIDOCAINE [Suspect]
     Route: 051
     Dates: start: 20040706
  12. FOLGARD [Concomitant]
  13. HYDROCHLOROTHIAZIDE [Concomitant]
  14. LEVOTHYROXINE [Concomitant]
  15. SODIUM CHLORIDE [Concomitant]
     Dosage: MIXED WITH LIDOCAINE AND KENALOG
     Route: 051
     Dates: start: 20040805
  16. CRESTOR [Suspect]
     Route: 048

REACTIONS (2)
  - HYPOTRICHOSIS [None]
  - ALOPECIA EFFLUVIUM [None]
